FAERS Safety Report 6445313-7 (Version None)
Quarter: 2009Q4

REPORT INFORMATION
  Report Type: 
  Country: None (occurrence: None)
  Receive Date: 20091116
  Receipt Date: 20091106
  Transmission Date: 20100525
  Serious: Yes (Other)
  Sender: FDA-Public Use
  Company Number: 1-20577165

PATIENT
  Sex: Female
  Weight: 93.8946 kg

DRUGS (4)
  1. WARFARIN SODIUM [Suspect]
     Dosage: 5 MG ONCE DAILY ORAL
     Route: 048
     Dates: start: 20080601, end: 20091030
  2. CETIRIZINE HCL [Suspect]
     Dosage: ORAL
     Route: 048
     Dates: start: 20090812, end: 20091030
  3. INSULIN [Concomitant]
  4. METFORMIN HCL [Concomitant]

REACTIONS (4)
  - ACCIDENTAL EXPOSURE [None]
  - DRUG DISPENSING ERROR [None]
  - INTERNATIONAL NORMALISED RATIO DECREASED [None]
  - REFUSAL OF TREATMENT BY PATIENT [None]
